FAERS Safety Report 9113226 (Version 2)
Quarter: 2013Q1

REPORT INFORMATION
  Report Type: Spontaneous
  Country: IL (occurrence: IL)
  Receive Date: 20130211
  Receipt Date: 20130228
  Transmission Date: 20140127
  Serious: Yes (Other)
  Sender: FDA-Public Use
  Company Number: IL-ELI_LILLY_AND_COMPANY-IL201211008731

PATIENT
  Sex: Female

DRUGS (6)
  1. FORTEO [Suspect]
     Indication: OSTEOPOROSIS
     Dosage: 20 UG, QD
     Route: 058
     Dates: start: 20120109
  2. LOSARTAN [Concomitant]
  3. CARDILOC [Concomitant]
  4. PRADAXA [Concomitant]
  5. FUSID [Concomitant]
  6. CALCIUM + VITAMIN D [Concomitant]

REACTIONS (1)
  - Osteonecrosis of jaw [Recovered/Resolved]
